FAERS Safety Report 20389620 (Version 1)
Quarter: 2022Q1

REPORT INFORMATION
  Report Type: Spontaneous
  Country: US (occurrence: US)
  Receive Date: 20220128
  Receipt Date: 20220128
  Transmission Date: 20220424
  Serious: Yes (Other)
  Sender: FDA-Public Use
  Company Number: US-NOVARTISPH-NVSC2022US015692

PATIENT

DRUGS (2)
  1. CARBOPLATIN [Suspect]
     Active Substance: CARBOPLATIN
     Indication: Malignant peritoneal neoplasm
     Dosage: UNK
     Route: 065
  2. PACLITAXEL [Suspect]
     Active Substance: PACLITAXEL
     Indication: Malignant peritoneal neoplasm
     Dosage: UNK
     Route: 065

REACTIONS (2)
  - Neuropathy peripheral [Recovering/Resolving]
  - Product use in unapproved indication [Unknown]
